FAERS Safety Report 12642167 (Version 1)
Quarter: 2016Q3

REPORT INFORMATION
  Report Type: Spontaneous
  Country: US (occurrence: US)
  Receive Date: 20160810
  Receipt Date: 20160810
  Transmission Date: 20161109
  Serious: No
  Sender: FDA-Public Use
  Company Number: US-BAYER-2016-146582

PATIENT
  Age: 63 Year
  Sex: Female
  Weight: 68.27 kg

DRUGS (2)
  1. MIRAFIBER CAPLETS [Suspect]
     Active Substance: CITRIC ACID MONOHYDRATE\METHYLCELLULOSE
     Indication: CONSTIPATION
     Dosage: 3 DOSE
     Route: 048
  2. MIRALAX [Suspect]
     Active Substance: POLYETHYLENE GLYCOL 3350
     Indication: CONSTIPATION
     Dosage: 1 DOSE
     Route: 048

REACTIONS (2)
  - Drug ineffective [None]
  - Product use issue [None]
